FAERS Safety Report 4755675-4 (Version None)
Quarter: 2005Q3

REPORT INFORMATION
  Report Type: 
  Country: None (occurrence: None)
  Receive Date: 20050830
  Receipt Date: 20050627
  Transmission Date: 20060218
  Serious: No
  Sender: FDA-Public Use
  Company Number: US-BRISTOL-MYERS SQUIBB COMPANY-13016332

PATIENT
  Age: 48 Year
  Sex: Female
  Weight: 73 kg

DRUGS (6)
  1. ABILIFY [Suspect]
     Indication: DEMENTIA
     Dosage: AN ADDITIONAL 10MG DAILY WAS ADDED ON 24-JUN-2005 TO HER 20MG DAILY REGIMEN AND STOPPED AFTER 3 DAYS
     Route: 048
     Dates: start: 20050430
  2. ABILIFY [Suspect]
     Indication: SENILE DEMENTIA
     Dosage: AN ADDITIONAL 10MG DAILY WAS ADDED ON 24-JUN-2005 TO HER 20MG DAILY REGIMEN AND STOPPED AFTER 3 DAYS
     Route: 048
     Dates: start: 20050430
  3. ABILIFY [Suspect]
     Indication: PSYCHOMOTOR HYPERACTIVITY
     Dosage: AN ADDITIONAL 10MG DAILY WAS ADDED ON 24-JUN-2005 TO HER 20MG DAILY REGIMEN AND STOPPED AFTER 3 DAYS
     Route: 048
     Dates: start: 20050430
  4. AMBIEN [Suspect]
  5. GEODON [Concomitant]
  6. TRILEPTAL [Concomitant]

REACTIONS (3)
  - DRUG INEFFECTIVE [None]
  - INSOMNIA [None]
  - LOGORRHOEA [None]
